FAERS Safety Report 9855425 (Version 1)
Quarter: 2014Q1

REPORT INFORMATION
  Report Type: Spontaneous
  Country: DE (occurrence: DE)
  Receive Date: 20140130
  Receipt Date: 20140130
  Transmission Date: 20141002
  Serious: Yes (Death, Other)
  Sender: FDA-Public Use
  Company Number: DE-UCBSA-110698

PATIENT
  Age: 65 Year
  Sex: Female

DRUGS (4)
  1. CIMZIA [Suspect]
     Indication: RHEUMATOID ARTHRITIS
     Route: 058
     Dates: end: 20131216
  2. MTX [Concomitant]
     Indication: RHEUMATOID ARTHRITIS
     Route: 058
  3. PREDNISOLON [Concomitant]
     Dosage: ^7.5-0-5MG^
  4. VIGANTOLETTEN [Concomitant]
     Dosage: 1000 INTERNATIONAL UNITS

REACTIONS (5)
  - Pulmonary hypertension [Fatal]
  - Convulsion [Fatal]
  - Status epilepticus [Fatal]
  - Acute respiratory failure [Fatal]
  - Insomnia [Unknown]
